FAERS Safety Report 19761481 (Version 1)
Quarter: 2021Q3

REPORT INFORMATION
  Report Type: Report from Study
  Country: CA (occurrence: CA)
  Receive Date: 20210830
  Receipt Date: 20210830
  Transmission Date: 20211014
  Serious: Yes (Other)
  Sender: FDA-Public Use
  Company Number: CA-ORION CORPORATION ORION PHARMA-21_00015637

PATIENT
  Age: 25 Year
  Sex: Female

DRUGS (10)
  1. ARAVA [Concomitant]
     Active Substance: LEFLUNOMIDE
     Route: 065
  2. SULFASALAZINE. [Concomitant]
     Active Substance: SULFASALAZINE
     Route: 048
  3. METHOTREXATE (TRADE NAME UNKNOWN) [Suspect]
     Active Substance: METHOTREXATE
     Route: 058
  4. CORTISONE [Concomitant]
     Active Substance: CORTISONE
     Route: 058
  5. NAPROXEN. [Concomitant]
     Active Substance: NAPROXEN
     Route: 048
  6. SULFASALAZINE. [Concomitant]
     Active Substance: SULFASALAZINE
     Route: 065
  7. IBUPROFEN;PSEUDOEPHEDRINE HYDROCHLORIDE [Concomitant]
     Active Substance: IBUPROFEN\PSEUDOEPHEDRINE HYDROCHLORIDE
     Route: 048
  8. LEFLUNOMIDE. [Concomitant]
     Active Substance: LEFLUNOMIDE
     Route: 048
  9. METHOTREXATE (TRADE NAME UNKNOWN) [Suspect]
     Active Substance: METHOTREXATE
     Indication: PRODUCT USED FOR UNKNOWN INDICATION
     Route: 048
  10. NAPROXEN SODIUM;PSEUDOEPHEDRINE HYDROCHLORIDE [Concomitant]
     Route: 048

REACTIONS (7)
  - Pain [Not Recovered/Not Resolved]
  - Joint swelling [Not Recovered/Not Resolved]
  - Oligoarthritis [Not Recovered/Not Resolved]
  - Discomfort [Not Recovered/Not Resolved]
  - Musculoskeletal stiffness [Not Recovered/Not Resolved]
  - Psoriatic arthropathy [Not Recovered/Not Resolved]
  - Fatigue [Not Recovered/Not Resolved]
